APPROVED DRUG PRODUCT: SULFAMETHOXAZOLE AND TRIMETHOPRIM
Active Ingredient: SULFAMETHOXAZOLE; TRIMETHOPRIM
Strength: 400MG;80MG
Dosage Form/Route: TABLET;ORAL
Application: A076817 | Product #001 | TE Code: AB
Applicant: VISTA PHARMACEUTICALS INC
Approved: Oct 7, 2005 | RLD: No | RS: No | Type: RX